FAERS Safety Report 7359572-X (Version None)
Quarter: 2011Q1

REPORT INFORMATION
  Report Type: 
  Country: None (occurrence: None)
  Receive Date: 20110317
  Receipt Date: 20100303
  Transmission Date: 20110831
  Serious: No
  Sender: FDA-Public Use
  Company Number: US-PFIZER INC-2010029198

PATIENT
  Age: 77 Year
  Sex: Female
  Weight: 53.5 kg

DRUGS (8)
  1. AVAPRO [Concomitant]
     Dosage: 300 MG, UNK
  2. PREMARIN [Concomitant]
     Dosage: 0.33 MG, UNK
  3. OSCAL [Concomitant]
     Dosage: UNK
  4. AMLODIPINE BESYLATE [Suspect]
     Indication: BLOOD PRESSURE ABNORMAL
     Route: 048
     Dates: start: 20090308, end: 20090101
  5. GLUCOSAMINE [Concomitant]
     Dosage: UNK
  6. NORVASC [Suspect]
     Indication: BLOOD PRESSURE ABNORMAL
     Dosage: 5 MG, 1X/DAY
     Route: 048
  7. DIGOXIN [Concomitant]
     Dosage: UNIT DOSE: 25;
  8. MULTIVITAMIN [Concomitant]
     Dosage: UNK

REACTIONS (2)
  - ABNORMAL DREAMS [None]
  - ANXIETY [None]
